FAERS Safety Report 9460584 (Version 2)
Quarter: 2017Q4

REPORT INFORMATION
  Report Type: Spontaneous
  Country: AU (occurrence: AU)
  Receive Date: 20130815
  Receipt Date: 20171004
  Transmission Date: 20180321
  Serious: Yes (Hospitalization, Other)
  Sender: FDA-Public Use
  Company Number: AU-PFIZER INC-2013233534

PATIENT
  Age: 59 Year
  Sex: Male
  Weight: 118 kg

DRUGS (7)
  1. CYTARABINE. [Suspect]
     Active Substance: CYTARABINE
     Indication: MYELOID LEUKAEMIA
     Dosage: 12 G, 1X/DAY
     Route: 042
     Dates: start: 20070607, end: 20070613
  2. VANCOCIN [Suspect]
     Active Substance: VANCOMYCIN HYDROCHLORIDE
     Indication: PYREXIA
     Dosage: 2 G, 1X/DAY
     Route: 042
     Dates: start: 20070616, end: 20070621
  3. PALIFERMIN [Suspect]
     Active Substance: PALIFERMIN
     Dosage: 7 MG, 1X/DAY
     Route: 042
     Dates: start: 20070604, end: 20070616
  4. ETOPOSIDE. [Suspect]
     Active Substance: ETOPOSIDE
     Indication: MYELOID LEUKAEMIA
     Dosage: 150 MG, 1X/DAY
     Route: 042
     Dates: start: 20070607, end: 20070613
  5. IDARUBICIN HCL [Suspect]
     Active Substance: IDARUBICIN HYDROCHLORIDE
     Indication: MYELOID LEUKAEMIA
     Dosage: 18 MG, 1X/DAY
     Route: 042
     Dates: start: 20070607, end: 20070609
  6. AMBISOME [Suspect]
     Active Substance: AMPHOTERICIN B
     Dosage: 30 MG, 1X/DAY
     Route: 042
     Dates: start: 20070617, end: 20070619
  7. MEROPENEM. [Suspect]
     Active Substance: MEROPENEM
     Dosage: 1500 MG, 1X/DAY
     Route: 048
     Dates: start: 20070617, end: 20070620

REACTIONS (5)
  - Hepatitis [Recovered/Resolved]
  - Blood creatinine increased [Recovered/Resolved]
  - Sepsis [Recovered/Resolved]
  - Tubulointerstitial nephritis [Recovered/Resolved]
  - Encephalopathy [Recovered/Resolved]

NARRATIVE: CASE EVENT DATE: 20070617
